FAERS Safety Report 4891153-X (Version None)
Quarter: 2006Q1

REPORT INFORMATION
  Report Type: 
  Country: None (occurrence: None)
  Receive Date: 20060123
  Receipt Date: 20060110
  Transmission Date: 20060701
  Serious: Yes (Hospitalization)
  Sender: FDA-Public Use
  Company Number: HQWYE302111JAN06

PATIENT
  Age: 52 Year
  Sex: Female

DRUGS (1)
  1. RAPAMUNE [Suspect]
     Indication: PROPHYLAXIS AGAINST TRANSPLANT REJECTION
     Dosage: 4 MG 1X PER 1 DAY; ORAL
     Route: 048
     Dates: start: 20030130, end: 20060111

REACTIONS (3)
  - DYSURIA [None]
  - IMPAIRED HEALING [None]
  - PYREXIA [None]
